FAERS Safety Report 22786941 (Version 2)
Quarter: 2023Q4

REPORT INFORMATION
  Report Type: Spontaneous
  Country: JP (occurrence: JP)
  Receive Date: 20230804
  Receipt Date: 20231215
  Transmission Date: 20240110
  Serious: Yes (Other)
  Sender: FDA-Public Use
  Company Number: JP-ASTELLAS-2022JP012173

PATIENT
  Age: 85 Year
  Sex: Male
  Weight: 63 kg

DRUGS (7)
  1. PADCEV [Suspect]
     Active Substance: ENFORTUMAB VEDOTIN-EJFV
     Indication: Transitional cell carcinoma
     Dosage: 1.0 MG/KG, ADMINISTERED ONCE A WEEK FOR 3 CONSECUTIVE WEEKS, WITH A BREAK IN THE 4TH WEEK
     Route: 041
     Dates: start: 20220630
  2. PADCEV [Suspect]
     Active Substance: ENFORTUMAB VEDOTIN-EJFV
     Dosage: 0.75 MG/KG, ADMINISTERED ONCE A WEEK FOR 3 CONSECUTIVE WEEKS, WITH A BREAK IN THE 4TH WEEK
     Route: 041
  3. PADCEV [Suspect]
     Active Substance: ENFORTUMAB VEDOTIN-EJFV
     Dosage: 1.0 MG/KG, ADMINISTERED ONCE A WEEK FOR 3 CONSECUTIVE WEEKS, WITH A BREAK IN THE 4TH WEEK
     Route: 041
  4. PADCEV [Suspect]
     Active Substance: ENFORTUMAB VEDOTIN-EJFV
     Dosage: UNK UNK, UNKNOWN FREQ.
     Route: 065
     Dates: start: 20230622
  5. PADCEV [Suspect]
     Active Substance: ENFORTUMAB VEDOTIN-EJFV
     Dosage: UNK UNK, UNKNOWN FREQ.
     Route: 065
  6. KEYTRUDA [Concomitant]
     Active Substance: PEMBROLIZUMAB
     Indication: Product used for unknown indication
     Dosage: UNK UNK, UNKNOWN FREQ.
     Route: 065
  7. PREDONINE [Concomitant]
     Active Substance: PREDNISOLONE
     Indication: Immune-mediated arthritis
     Route: 048

REACTIONS (9)
  - Neuropathy peripheral [Recovering/Resolving]
  - Hypoaesthesia [Not Recovered/Not Resolved]
  - Dry skin [Not Recovered/Not Resolved]
  - Erythema [Not Recovered/Not Resolved]
  - Diarrhoea [Unknown]
  - Decreased appetite [Recovered/Resolved]
  - Taste disorder [Recovering/Resolving]
  - Hyperglycaemia [Unknown]
  - Adrenal insufficiency [Recovered/Resolved]

NARRATIVE: CASE EVENT DATE: 20220701
